FAERS Safety Report 7991846-1 (Version None)
Quarter: 2011Q4

REPORT INFORMATION
  Report Type: 
  Country: None (occurrence: None)
  Receive Date: 20111219
  Receipt Date: 20111215
  Transmission Date: 20120403
  Serious: Yes (Other)
  Sender: FDA-Public Use
  Company Number: US-PFIZER INC-2011305715

PATIENT

DRUGS (2)
  1. AMIODARONE HCL [Suspect]
     Dosage: UNK
  2. DRONEDARONE HYDROCHLORIDE [Suspect]
     Dosage: 400 MG, UNK
     Dates: start: 20101001

REACTIONS (3)
  - ATRIAL FIBRILLATION [None]
  - HEART RATE DECREASED [None]
  - CONSTIPATION [None]
